FAERS Safety Report 10998074 (Version 2)
Quarter: 2015Q2

REPORT INFORMATION
  Report Type: Report from Study
  Country: US (occurrence: US)
  Receive Date: 20150408
  Receipt Date: 20150504
  Transmission Date: 20150821
  Serious: Yes (Hospitalization)
  Sender: FDA-Public Use
  Company Number: US-ACTELION-A-US2015-115767

PATIENT
  Age: 35 Year
  Sex: Female

DRUGS (4)
  1. COUMADIN [Concomitant]
     Active Substance: WARFARIN SODIUM
  2. TRACLEER [Suspect]
     Active Substance: BOSENTAN\BOSENTAN MONOHYDRATE
     Indication: PULMONARY ARTERIAL HYPERTENSION
     Dosage: UNK
     Route: 048
  3. SILDENAFIL. [Concomitant]
     Active Substance: SILDENAFIL
  4. TYVASO [Concomitant]
     Active Substance: TREPROSTINIL

REACTIONS (6)
  - Palpitations [Unknown]
  - Dyspnoea [Unknown]
  - Fluid retention [Unknown]
  - Asthenia [Unknown]
  - Blood potassium decreased [Unknown]
  - Syncope [Unknown]
